FAERS Safety Report 10654544 (Version 1)
Quarter: 2014Q4

REPORT INFORMATION
  Report Type: Spontaneous
  Country: IT (occurrence: IT)
  Receive Date: 20141216
  Receipt Date: 20141216
  Transmission Date: 20150529
  Serious: Yes (Hospitalization)
  Sender: FDA-Public Use
  Company Number: IT-TEVA-528530ISR

PATIENT
  Age: 51 Year
  Sex: Female

DRUGS (9)
  1. TAVOR [Suspect]
     Active Substance: LORAZEPAM
     Indication: SUICIDE ATTEMPT
     Dosage: 50 MG TOTAL
     Route: 048
     Dates: start: 20141126, end: 20141126
  2. DEPAKIN CHRONO - 500 MG COMPRESSE A RILASCIO PROLUNGATO - BB FARMA SRL [Suspect]
     Active Substance: VALPROIC ACID
     Indication: SUICIDE ATTEMPT
     Dosage: 20 DF TOTAL
     Route: 048
     Dates: start: 20141126, end: 20141126
  3. PAROXETINE [Suspect]
     Active Substance: PAROXETINE\PAROXETINE HYDROCHLORIDE
     Indication: SUICIDE ATTEMPT
     Dosage: 140 MG TOTAL
     Route: 048
     Dates: start: 20141126, end: 20141126
  4. LARGACTIL - 25 MG COMPRESSE RIVESTITE CON FILM - TEOFARMA S.R.L. [Suspect]
     Active Substance: CHLORPROMAZINE
     Indication: SUICIDE ATTEMPT
     Dosage: 29 DF TOTAL
     Route: 048
     Dates: start: 20141126, end: 20141126
  5. ANAFRANIL [Suspect]
     Active Substance: CLOMIPRAMINE HYDROCHLORIDE
     Indication: SUICIDE ATTEMPT
     Dosage: 10 DF TOTAL
     Route: 048
     Dates: start: 20141126, end: 20141126
  6. VALDOXAN [Suspect]
     Active Substance: AGOMELATINE
     Indication: SUICIDE ATTEMPT
     Dosage: 14 DF TOTAL
     Route: 048
     Dates: start: 20141126, end: 20141126
  7. LIMBITRYL - 12,5 MG + 5 MG CAPSULE RIGIDE - MEDA PHARMA S.P.A [Suspect]
     Active Substance: AMITRIPTYLINE HYDROCHLORIDE\CHLORDIAZEPOXIDE HYDROCHLORIDE
     Indication: SUICIDE ATTEMPT
     Dosage: 10 DF TOTAL
     Route: 048
     Dates: start: 20141126, end: 20141126
  8. LAMICTAL [Suspect]
     Active Substance: LAMOTRIGINE
     Indication: SUICIDE ATTEMPT
     Dosage: 56 DF TOTAL
     Route: 048
     Dates: start: 20141126, end: 20141126
  9. ABILIFY [Suspect]
     Active Substance: ARIPIPRAZOLE
     Indication: SUICIDE ATTEMPT
     Dosage: 60 DF TOTAL
     Route: 048
     Dates: start: 20141126, end: 20141126

REACTIONS (4)
  - Alcohol abuse [Unknown]
  - Sopor [Unknown]
  - Drug abuse [Unknown]
  - Suicide attempt [Unknown]

NARRATIVE: CASE EVENT DATE: 20141126
